FAERS Safety Report 9492092 (Version 1)
Quarter: 2013Q3

REPORT INFORMATION
  Report Type: Spontaneous
  Country: US (occurrence: US)
  Receive Date: 20130830
  Receipt Date: 20130830
  Transmission Date: 20140515
  Serious: No
  Sender: FDA-Public Use
  Company Number: US-PFIZER INC-2013249878

PATIENT
  Sex: Male

DRUGS (2)
  1. LYRICA [Suspect]
     Indication: PAIN
     Dosage: 150 MG, UNK
  2. LYRICA [Suspect]
     Dosage: 300 MG, 4X A DAY SOMETIMES TAKES 5

REACTIONS (3)
  - Intentional drug misuse [Unknown]
  - Drug effect incomplete [Unknown]
  - Drug ineffective [Unknown]
